FAERS Safety Report 9045033 (Version 1)
Quarter: 2013Q1

REPORT INFORMATION
  Report Type: Spontaneous
  Country: IT (occurrence: IT)
  Receive Date: 20130130
  Receipt Date: 20130130
  Transmission Date: 20140127
  Serious: Yes (Other)
  Sender: FDA-Public Use
  Company Number: IT-UCBSA-076719

PATIENT
  Age: 80 Year
  Sex: Male

DRUGS (6)
  1. ISOSORBIDE MONONITRATE [Suspect]
     Route: 048
     Dates: start: 20111210, end: 20121209
  2. SOTALOL HYDROCHLORIDE [Suspect]
     Route: 048
     Dates: start: 20111210, end: 20121209
  3. TAMSULOSIN HYDROCHLORIDE [Suspect]
     Route: 048
     Dates: start: 20111210, end: 20121209
  4. LANOXIN [Concomitant]
     Dosage: 0.25 MG ,30 TABLETS
  5. ALLOPURINOL [Concomitant]
  6. METFORMIN HYDROCHLORIDE [Concomitant]

REACTIONS (1)
  - Presyncope [Recovering/Resolving]
